FAERS Safety Report 8556073-8 (Version None)
Quarter: 2012Q3

REPORT INFORMATION
  Report Type: 
  Country: None (occurrence: None)
  Receive Date: 20120719
  Receipt Date: 20120427
  Transmission Date: 20120928
  Serious: Yes (Hospitalization)
  Sender: FDA-Public Use
  Company Number: 2012MA008623

PATIENT
  Age: 53 Year
  Sex: Male

DRUGS (2)
  1. METFORMIN HYDROCHLORIDE [Suspect]
     Indication: PRODUCT USED FOR UNKNOWN INDICATION
     Dosage: 50000 MG;X1;UNK
  2. REPAGLINIDE [Suspect]
     Indication: PRODUCT USED FOR UNKNOWN INDICATION

REACTIONS (9)
  - LACTIC ACIDOSIS [None]
  - RENAL FAILURE [None]
  - SOMNOLENCE [None]
  - HYPOTENSION [None]
  - ANION GAP INCREASED [None]
  - HYPOGLYCAEMIA [None]
  - DIARRHOEA [None]
  - DIZZINESS [None]
  - OVERDOSE [None]
